FAERS Safety Report 4717924-8 (Version None)
Quarter: 2005Q3

REPORT INFORMATION
  Report Type: 
  Country: None (occurrence: None)
  Receive Date: 20050715
  Receipt Date: 20050705
  Transmission Date: 20060218
  Serious: Yes (Disabling, Other)
  Sender: FDA-Public Use
  Company Number: DEU-2005-0001294

PATIENT
  Age: 70 Year
  Sex: Male

DRUGS (8)
  1. OXYGESIC 20 MG(OXYCODONE HYDROCHLORIDE) CR TABLET [Suspect]
     Indication: PAIN
     Dosage: 80 MG, BID, ORAL
     Route: 048
     Dates: start: 20030101
  2. PREDNISONE TAB [Concomitant]
  3. AMLODIPINE [Concomitant]
  4. ENALAPRIL MALEATE [Concomitant]
  5. MOBEC ^BOEHRINGER INGELHEIM^ (MELOXICAM) [Concomitant]
  6. LEVOTHYROXINE SODIUM [Concomitant]
  7. OMNIC (TAMSULOSIN HYDROCHLORIDE) [Concomitant]
  8. BLEMAREN (SODIUM CITRATE, CITRIC ACID, POTASSIUM CARBONATE) [Concomitant]

REACTIONS (6)
  - DRUG INEFFECTIVE [None]
  - MINERAL DEFICIENCY [None]
  - TOOTH DISORDER [None]
  - TOOTH EROSION [None]
  - TOOTH EXTRACTION [None]
  - TOOTH LOSS [None]
